FAERS Safety Report 9700699 (Version 1)
Quarter: 2013Q4

REPORT INFORMATION
  Report Type: Spontaneous
  Country: US (occurrence: US)
  Receive Date: 20131121
  Receipt Date: 20131121
  Transmission Date: 20140711
  Serious: No
  Sender: FDA-Public Use
  Company Number: US-009507513-1311USA002944

PATIENT
  Age: 44 Year
  Sex: Male
  Weight: 92.97 kg

DRUGS (4)
  1. PEGINTRON [Suspect]
     Indication: HEPATITIS C
     Dosage: UNK
     Dates: end: 201005
  2. ENBREL [Concomitant]
     Indication: PSORIASIS
  3. ENBREL [Concomitant]
     Indication: PSORIATIC ARTHROPATHY
  4. TRAMADOL HYDROCHLORIDE [Concomitant]
     Indication: PAIN
     Dosage: PRN

REACTIONS (6)
  - Psoriatic arthropathy [Unknown]
  - Daydreaming [Unknown]
  - Psoriasis [Unknown]
  - Speech disorder [Unknown]
  - Paraesthesia [Unknown]
  - Pruritus [Unknown]
